FAERS Safety Report 8182142-0 (Version None)
Quarter: 2012Q1

REPORT INFORMATION
  Report Type: 
  Country: None (occurrence: None)
  Receive Date: 20120302
  Receipt Date: 20120223
  Transmission Date: 20120608
  Serious: Yes (Other)
  Sender: FDA-Public Use
  Company Number: US-ASTRAZENECA-2012SE12761

PATIENT
  Sex: Female

DRUGS (2)
  1. RESPIDOL [Concomitant]
     Route: 065
  2. SEROQUEL XR [Suspect]
     Route: 048

REACTIONS (1)
  - ELECTROCARDIOGRAM QT PROLONGED [None]
